FAERS Safety Report 10431452 (Version 1)
Quarter: 2014Q3

REPORT INFORMATION
  Report Type: Spontaneous
  Country: ZW (occurrence: ZW)
  Receive Date: 20140904
  Receipt Date: 20140904
  Transmission Date: 20150326
  Serious: Yes (Other)
  Sender: FDA-Public Use
  Company Number: ZW-GLAXOSMITHKLINE-B1029608A

PATIENT
  Age: 46 Year
  Sex: Female

DRUGS (1)
  1. ZINNAT [Suspect]
     Active Substance: CEFUROXIME AXETIL
     Indication: URINARY TRACT INFECTION
     Dosage: 500MG PER DAY
     Route: 065

REACTIONS (3)
  - Mucosal inflammation [Unknown]
  - Anaphylactic reaction [Unknown]
  - Dyspnoea [Unknown]
